FAERS Safety Report 8835667 (Version 1)
Quarter: 2012Q4

REPORT INFORMATION
  Report Type: 
  Country: JP (occurrence: JP)
  Receive Date: 20121011
  Receipt Date: 20121011
  Transmission Date: 20130627
  Serious: Yes (Hospitalization, Other)
  Sender: FDA-Public Use
  Company Number: JP-BRISTOL-MYERS SQUIBB COMPANY-15141864

PATIENT
  Age: 59 Year
  Sex: Female
  Weight: 74 kg

DRUGS (20)
  1. ABILIFY TABS [Suspect]
     Indication: DEPRESSION
     Dosage: Abilify tabs 3mg
     Route: 048
     Dates: start: 20100406
  2. MUCOSTA [Suspect]
     Indication: PROPHYLAXIS AGAINST GASTROINTESTINAL ULCER
     Dosage: Mucosta tab
     Route: 048
     Dates: start: 20091130
  3. MYSLEE [Suspect]
     Indication: DEPRESSION
     Route: 048
     Dates: start: 20100406
  4. CERTOLIZUMAB PEGOL [Concomitant]
     Indication: RHEUMATOID ARTHRITIS
     Dosage: Form injection
     Route: 058
     Dates: start: 20100408
  5. DIOVAN [Concomitant]
     Dosage: tab
     Dates: start: 20080130
  6. LUVOX [Concomitant]
     Dosage: tabs
     Dates: start: 20080130
  7. MERCAZOLE [Concomitant]
     Dosage: tab
  8. PREDNISOLONE [Concomitant]
     Dosage: tab
     Dates: start: 20080922
  9. DIFENIDOL [Concomitant]
     Dosage: tab
     Dates: start: 20081006
  10. LORFENAMIN [Concomitant]
     Dosage: tab
     Dates: start: 20091130
  11. ISCOTIN [Concomitant]
     Dosage: tab
     Dates: start: 20091217
  12. DICLOFENAC SODIUM [Concomitant]
     Dosage: suppositories
     Dates: start: 20091229
  13. OMEPRAL [Concomitant]
     Dosage: tab
     Dates: start: 20100325
  14. ETIZOLAM [Concomitant]
     Dosage: tab
     Dates: start: 20100406
  15. AMLODIPINE [Concomitant]
     Dosage: Form tablet
     Dates: start: 20100406
  16. PRAVASTATIN SODIUM [Concomitant]
     Dosage: Form tablet
     Dates: start: 20100406
  17. ALOSENN [Concomitant]
     Dosage: Form granule
     Dates: start: 20100517
  18. LEVOFLOXACIN [Concomitant]
     Dosage: Form tablet
     Dates: start: 20100524
  19. KETOCONAZOLE CREAM [Concomitant]
     Dosage: Form ointment
     Dates: start: 20100527
  20. SODIUM PICOSULFATE [Concomitant]
     Dosage: Form Liquid.
     Dates: start: 20100521

REACTIONS (1)
  - Brain stem haemorrhage [Not Recovered/Not Resolved]
